FAERS Safety Report 8584332-1 (Version None)
Quarter: 2012Q3

REPORT INFORMATION
  Report Type: 
  Country: None (occurrence: None)
  Receive Date: 20120810
  Receipt Date: 20120801
  Transmission Date: 20120928
  Serious: No
  Sender: FDA-Public Use
  Company Number: US-BIOGENIDEC-2012BI028919

PATIENT
  Sex: Female

DRUGS (2)
  1. TYSABRI [Suspect]
     Indication: MULTIPLE SCLEROSIS
     Route: 042
     Dates: start: 20100202, end: 20110526
  2. NUVIGIL [Concomitant]
     Indication: FATIGUE

REACTIONS (4)
  - ASTHENIA [None]
  - BIPOLAR I DISORDER [None]
  - ADVERSE DRUG REACTION [None]
  - FATIGUE [None]
